FAERS Safety Report 6485261-X (Version None)
Quarter: 2009Q4

REPORT INFORMATION
  Report Type: 
  Country: None (occurrence: None)
  Receive Date: 20091209
  Receipt Date: 20091204
  Transmission Date: 20100525
  Serious: Yes (Hospitalization)
  Sender: FDA-Public Use
  Company Number: FR-MERCK-0912FRA00018

PATIENT
  Age: 78 Year
  Sex: Male

DRUGS (3)
  1. COZAAR [Suspect]
     Indication: HYPERTENSION
     Route: 048
  2. BETAMETHASONE DIPROPIONATE [Suspect]
     Indication: PSORIASIS
     Route: 061
  3. CUPRIC SULFATE [Concomitant]
     Indication: PSORIASIS
     Route: 061

REACTIONS (2)
  - ADRENAL INSUFFICIENCY [None]
  - PUSTULAR PSORIASIS [None]
